FAERS Safety Report 14146290 (Version 1)
Quarter: 2017Q4

REPORT INFORMATION
  Report Type: Spontaneous
  Country: US (occurrence: None)
  Receive Date: 20171031
  Receipt Date: 20171031
  Transmission Date: 20180321
  Serious: No
  Sender: FDA-Public Use
  Company Number: None

PATIENT
  Age: 92 Year
  Sex: Male
  Weight: 90.72 kg

DRUGS (4)
  1. DOXYCYCLINE MONO 50MG GA [Suspect]
     Active Substance: DOXYCYCLINE
     Indication: EYELID INFECTION
     Route: 048
     Dates: start: 20170113, end: 20170120
  2. VITAMIN D [Concomitant]
     Active Substance: CHOLECALCIFEROL
  3. VIT B-12 [Concomitant]
  4. TRIAM/HCTZ [Concomitant]
     Active Substance: HYDROCHLOROTHIAZIDE\TRIAMTERENE

REACTIONS (14)
  - Pruritus [None]
  - Peripheral swelling [None]
  - Blister rupture [None]
  - Head discomfort [None]
  - Dizziness [None]
  - Fluid retention [None]
  - Dyspnoea [None]
  - Swelling [None]
  - Abdominal pain upper [None]
  - Swelling face [None]
  - Hypertension [None]
  - Rash [None]
  - Diarrhoea [None]
  - Visual impairment [None]

NARRATIVE: CASE EVENT DATE: 20170120
